FAERS Safety Report 8838548 (Version 2)
Quarter: 2012Q4

REPORT INFORMATION
  Report Type: Report from Study
  Country: JP (occurrence: JP)
  Receive Date: 20121012
  Receipt Date: 20121029
  Transmission Date: 20130627
  Serious: Yes (Other)
  Sender: FDA-Public Use
  Company Number: JP-JNJFOC-20121007466

PATIENT
  Age: 67 Year
  Sex: Female

DRUGS (8)
  1. RIVAROXABAN [Suspect]
     Indication: THROMBOSIS PROPHYLAXIS
     Route: 048
     Dates: start: 20120825
  2. RIVAROXABAN [Suspect]
     Indication: ATRIAL FIBRILLATION
     Route: 048
     Dates: start: 20120825
  3. SUNRYTHM [Concomitant]
     Indication: CARDIOVERSION
     Route: 048
     Dates: start: 20120825, end: 20120901
  4. BEPRIDIL [Concomitant]
     Indication: CARDIOVERSION
     Route: 048
     Dates: start: 20120902, end: 20120908
  5. BEPRIDIL [Concomitant]
     Indication: CARDIOVERSION
     Route: 048
     Dates: start: 20120909
  6. VASOLAN [Concomitant]
     Indication: HEART RATE ABNORMAL
     Route: 048
     Dates: start: 20120825, end: 20120920
  7. CONIEL [Concomitant]
     Indication: BLOOD PRESSURE MANAGEMENT
     Route: 048
     Dates: start: 20050202
  8. BLOPRESS [Concomitant]
     Indication: BLOOD PRESSURE MANAGEMENT
     Route: 048
     Dates: start: 20050202

REACTIONS (1)
  - Hepatic function abnormal [Recovered/Resolved]
